FAERS Safety Report 14262228 (Version 1)
Quarter: 2017Q4

REPORT INFORMATION
  Report Type: Spontaneous
  Country: US (occurrence: US)
  Receive Date: 20171208
  Receipt Date: 20171208
  Transmission Date: 20180321
  Serious: Yes (Other)
  Sender: FDA-Public Use
  Company Number: None

PATIENT
  Sex: Female
  Weight: 101.25 kg

DRUGS (10)
  1. VITAMIN D3 [Concomitant]
     Active Substance: CHOLECALCIFEROL
  2. STELARA [Suspect]
     Active Substance: USTEKINUMAB
     Indication: PSORIATIC ARTHROPATHY
     Dates: start: 20170406, end: 20171018
  3. SYNTHROID [Concomitant]
     Active Substance: LEVOTHYROXINE SODIUM
  4. FOLIC ACID. [Concomitant]
     Active Substance: FOLIC ACID
  5. SPIROLACTINE NEBULIZER [Concomitant]
  6. SUPER B COMPLEX [Concomitant]
     Active Substance: CYANOCOBALAMIN\DEXPANTHENOL\NIACINAMIDE\PYRIDOXINE HYDROCHLORIDE\RIBOFLAVIN 5^-PHOSPHATE SODIUM\THIAMINE HYDROCHLORIDE\VITAMIN B COMPLEX
  7. HAIR AND NAIL SUPPLEMENT [Concomitant]
  8. GABBEPENTIN [Concomitant]
  9. VENOFLUXINE [Concomitant]
  10. EYE HEALTH (OCCUVITE/PRESAR) [Concomitant]

REACTIONS (3)
  - Bronchitis [None]
  - Pneumonia [None]
  - Upper respiratory tract infection [None]

NARRATIVE: CASE EVENT DATE: 20170715
